FAERS Safety Report 6645606-4 (Version None)
Quarter: 2010Q1

REPORT INFORMATION
  Report Type: 
  Country: None (occurrence: None)
  Receive Date: 20100323
  Receipt Date: 20100308
  Transmission Date: 20100710
  Serious: Yes (Hospitalization, Disabling, Other)
  Sender: FDA-Public Use
  Company Number: US-CELGENEUS-163-21880-09110831

PATIENT
  Sex: Male

DRUGS (8)
  1. REVLIMID [Suspect]
     Route: 048
     Dates: start: 20090901
  2. REVLIMID [Suspect]
     Route: 048
     Dates: start: 20090710
  3. VITAMINS [Concomitant]
     Indication: DRUG USE FOR UNKNOWN INDICATION
     Route: 065
  4. TRICOT [Concomitant]
     Indication: DRUG USE FOR UNKNOWN INDICATION
     Route: 065
  5. NEXIUM [Concomitant]
     Indication: DRUG USE FOR UNKNOWN INDICATION
     Route: 065
  6. REB BLOOD CELLS [Concomitant]
     Route: 051
  7. ARANESP [Concomitant]
     Indication: DRUG USE FOR UNKNOWN INDICATION
     Route: 065
  8. PLATELETS [Concomitant]
     Route: 051

REACTIONS (6)
  - ANAEMIA [None]
  - DISEASE PROGRESSION [None]
  - DRUG DISPENSING ERROR [None]
  - MEDICATION ERROR [None]
  - PANCYTOPENIA [None]
  - THROMBOCYTOPENIA [None]
